FAERS Safety Report 10372720 (Version 1)
Quarter: 2014Q3

REPORT INFORMATION
  Report Type: Spontaneous
  Country: AU (occurrence: AU)
  Receive Date: 20140808
  Receipt Date: 20140808
  Transmission Date: 20150326
  Serious: Yes (Hospitalization)
  Sender: FDA-Public Use
  Company Number: PHHY2014AU096313

PATIENT
  Age: 86 Year
  Sex: Female

DRUGS (2)
  1. VORICONAZOLE. [Suspect]
     Active Substance: VORICONAZOLE
     Indication: OTITIS EXTERNA
  2. MEROPENEM. [Concomitant]
     Active Substance: MEROPENEM
     Route: 041

REACTIONS (1)
  - Toxicity to various agents [Unknown]
